FAERS Safety Report 6716286-4 (Version None)
Quarter: 2010Q2

REPORT INFORMATION
  Report Type: 
  Country: None (occurrence: None)
  Receive Date: 20100506
  Receipt Date: 20100506
  Transmission Date: 20101027
  Serious: Yes (Hospitalization)
  Sender: FDA-Public Use
  Company Number: None

PATIENT
  Sex: Male
  Weight: 117 kg

DRUGS (2)
  1. CLOFARABINE 30 MG / M2 [Suspect]
     Indication: CHRONIC MYELOMONOCYTIC LEUKAEMIA
     Dosage: 74 MG DAILY IV DRIP
     Route: 041
     Dates: start: 20100409, end: 20100413
  2. CLOFARABINE 30 MG / M2 [Suspect]
     Indication: MYELODYSPLASTIC SYNDROME
     Dosage: 74 MG DAILY IV DRIP
     Route: 041
     Dates: start: 20100409, end: 20100413

REACTIONS (4)
  - EYE INFECTION [None]
  - FUNGAL INFECTION [None]
  - PNEUMONIA FUNGAL [None]
  - SINUSITIS FUNGAL [None]
